FAERS Safety Report 7365474-5 (Version None)
Quarter: 2011Q1

REPORT INFORMATION
  Report Type: 
  Country: None (occurrence: None)
  Receive Date: 20110316
  Receipt Date: 20110316
  Transmission Date: 20110831
  Serious: Yes (Life-Threatening, Other)
  Sender: FDA-Public Use
  Company Number: None

PATIENT
  Sex: Female
  Weight: 59.8748 kg

DRUGS (13)
  1. AVAPRO [Concomitant]
  2. NEURONTIN [Concomitant]
  3. CALTRATE WITH VIT D [Concomitant]
  4. CALAN [Concomitant]
  5. SYNTHROID [Concomitant]
  6. FOLTX [Concomitant]
  7. LIPITOR [Concomitant]
  8. XANAX [Concomitant]
  9. MIRALAX [Concomitant]
  10. VALIUM [Concomitant]
  11. TOPROL-XL [Concomitant]
  12. VERAPAMIL [Suspect]
     Indication: HYPERTENSION
     Dosage: 120MG ONE QDAY PO (047)
     Route: 048
     Dates: start: 20050101, end: 20080101
  13. COUMADIN [Concomitant]

REACTIONS (2)
  - HEART RATE DECREASED [None]
  - PRODUCT SUBSTITUTION ISSUE [None]
